FAERS Safety Report 5191503-3 (Version None)
Quarter: 2006Q4

REPORT INFORMATION
  Report Type: 
  Country: None (occurrence: None)
  Receive Date: 20061226
  Receipt Date: 20061215
  Transmission Date: 20070319
  Serious: Yes (Other)
  Sender: FDA-Public Use
  Company Number: US-SANOFI-SYNTHELABO-A03200607538

PATIENT
  Sex: Male

DRUGS (4)
  1. APIDRA [Concomitant]
     Dosage: UNK
     Route: 058
  2. LANTUS [Concomitant]
     Route: 058
  3. NORVASC [Concomitant]
     Dosage: UNK
     Route: 048
     Dates: start: 20060701, end: 20061214
  4. PLAVIX [Suspect]
     Indication: EYE HAEMORRHAGE
     Route: 048
     Dates: start: 20060601, end: 20061214

REACTIONS (3)
  - EYE HAEMORRHAGE [None]
  - MYALGIA [None]
  - RETINAL DETACHMENT [None]
